FAERS Safety Report 17371001 (Version 1)
Quarter: 2020Q1

REPORT INFORMATION
  Report Type: Spontaneous
  Country: US (occurrence: US)
  Receive Date: 20200205
  Receipt Date: 20200205
  Transmission Date: 20200409
  Serious: No
  Sender: FDA-Public Use
  Company Number: US-AUROBINDO-AUR-APL-2019-094450

PATIENT
  Age: 43 Year
  Sex: Female
  Weight: 95 kg

DRUGS (2)
  1. RANITIDINE 150 MG CAPSULES [Suspect]
     Active Substance: RANITIDINE
     Indication: GASTROOESOPHAGEAL REFLUX DISEASE
     Dosage: 2 DOSAGE FORM, DAILY
     Route: 065
     Dates: start: 20190909
  2. RANITIDINE 150 MG CAPSULES [Suspect]
     Active Substance: RANITIDINE
     Indication: DYSPEPSIA

REACTIONS (5)
  - Diarrhoea [Recovered/Resolved]
  - Abdominal pain upper [Not Recovered/Not Resolved]
  - Dizziness [Not Recovered/Not Resolved]
  - Vomiting [Not Recovered/Not Resolved]
  - Abdominal discomfort [Not Recovered/Not Resolved]

NARRATIVE: CASE EVENT DATE: 20190912
